FAERS Safety Report 14292780 (Version 1)
Quarter: 2017Q4

REPORT INFORMATION
  Report Type: Report from Study
  Country: CA (occurrence: CA)
  Receive Date: 20171215
  Receipt Date: 20171215
  Transmission Date: 20180321
  Serious: Yes (Death, Disabling)
  Sender: FDA-Public Use
  Company Number: CA-TAKEDA-2017MPI011329

PATIENT
  Age: 65 Year
  Sex: Male
  Weight: 64 kg

DRUGS (2)
  1. VELCADE [Suspect]
     Active Substance: BORTEZOMIB
     Indication: PLASMA CELL MYELOMA
     Dosage: UNK
     Route: 058
     Dates: start: 20170919
  2. DARZALEX [Suspect]
     Active Substance: DARATUMUMAB
     Indication: PLASMA CELL MYELOMA
     Dosage: 16 MG/KG, MONTHLY
     Route: 042
     Dates: start: 20170529, end: 20171115

REACTIONS (3)
  - Treatment noncompliance [Unknown]
  - Spinal fracture [Unknown]
  - Assisted suicide [Fatal]

NARRATIVE: CASE EVENT DATE: 20170907
